FAERS Safety Report 9505824 (Version 1)
Quarter: 2013Q1

REPORT INFORMATION
  Report Type: Spontaneous
  Country: US (occurrence: None)
  Receive Date: 20130214
  Receipt Date: 20130214
  Transmission Date: 20140127
  Serious: Yes (Disabling)
  Sender: FDA-Public Use
  Company Number: 1210USA001929

PATIENT
  Age: 26 Year
  Sex: Male

DRUGS (1)
  1. PROPECIA [Suspect]
     Indication: ANDROGENETIC ALOPECIA
     Dosage: 1 MG. QD, ORAL
     Route: 048
     Dates: start: 200001

REACTIONS (2)
  - Cognitive disorder [None]
  - Sexual dysfunction [None]
